FAERS Safety Report 23241139 (Version 3)
Quarter: 2024Q1

REPORT INFORMATION
  Report Type: Report from Study
  Country: US (occurrence: US)
  Receive Date: 20231129
  Receipt Date: 20240129
  Transmission Date: 20240410
  Serious: Yes (Hospitalization)
  Sender: FDA-Public Use
  Company Number: US-TAKEDA-2023TUS112915

PATIENT
  Sex: Female

DRUGS (4)
  1. TEDUGLUTIDE [Suspect]
     Active Substance: TEDUGLUTIDE
     Indication: Short-bowel syndrome
     Dosage: 0.05 MILLILITER, QD
     Route: 058
     Dates: start: 202310
  2. TEDUGLUTIDE [Suspect]
     Active Substance: TEDUGLUTIDE
     Indication: Short-bowel syndrome
     Dosage: 0.05 MILLILITER, QD
     Route: 058
     Dates: start: 202310
  3. TEDUGLUTIDE [Suspect]
     Active Substance: TEDUGLUTIDE
     Indication: Short-bowel syndrome
     Dosage: 0.05 MILLILITER, QD
     Route: 058
     Dates: start: 202310
  4. TEDUGLUTIDE [Suspect]
     Active Substance: TEDUGLUTIDE
     Indication: Short-bowel syndrome
     Dosage: 0.05 MILLILITER, QD
     Route: 058
     Dates: start: 202310

REACTIONS (6)
  - Herpes simplex test positive [Unknown]
  - Vomiting [Unknown]
  - Pyrexia [Unknown]
  - Bowel movement irregularity [Unknown]
  - Abdominal pain [Unknown]
  - Nasopharyngitis [Unknown]
